FAERS Safety Report 7811351-2 (Version None)
Quarter: 2011Q4

REPORT INFORMATION
  Report Type: 
  Country: None (occurrence: None)
  Receive Date: 20111012
  Receipt Date: 20111012
  Transmission Date: 20120403
  Serious: Yes (Hospitalization, Other)
  Sender: FDA-Public Use
  Company Number: None

PATIENT
  Age: 44 Year
  Sex: Male

DRUGS (1)
  1. QUTENZA [Suspect]
     Indication: NEURALGIA
     Dosage: 8% PATCH, 1 TIME DOSE
     Dates: start: 20110901

REACTIONS (1)
  - PAIN [None]
